FAERS Safety Report 9501487 (Version 1)
Quarter: 2013Q3

REPORT INFORMATION
  Report Type: Spontaneous
  Country: FR (occurrence: FR)
  Receive Date: 20130905
  Receipt Date: 20130905
  Transmission Date: 20140515
  Serious: Yes (Hospitalization)
  Sender: FDA-Public Use
  Company Number: FR-JNJFOC-20130816680

PATIENT
  Age: 49 Year
  Sex: Female

DRUGS (13)
  1. REMICADE [Suspect]
     Indication: CROHN^S DISEASE
     Route: 042
     Dates: start: 20130625
  2. REMICADE [Suspect]
     Indication: CROHN^S DISEASE
     Route: 042
     Dates: start: 20130731
  3. REMICADE [Suspect]
     Indication: CROHN^S DISEASE
     Route: 042
     Dates: start: 20130710
  4. REMICADE [Suspect]
     Indication: CROHN^S DISEASE
     Route: 042
     Dates: start: 2004, end: 2008
  5. SOLU MEDROL [Suspect]
     Indication: PREMEDICATION
     Route: 042
     Dates: start: 20130731
  6. SOLU MEDROL [Suspect]
     Indication: PREMEDICATION
     Route: 042
     Dates: start: 20130710
  7. SOLU MEDROL [Suspect]
     Indication: PREMEDICATION
     Route: 042
     Dates: start: 20130625
  8. VENOFER [Suspect]
     Indication: IRON DEFICIENCY ANAEMIA
     Route: 042
     Dates: start: 20130710
  9. IXPRIM [Concomitant]
     Indication: ABDOMINAL PAIN
     Dosage: 37.5MG/325MG PRN
     Route: 048
     Dates: start: 2012
  10. PYOSTACINE [Concomitant]
     Indication: FURUNCLE
     Route: 048
     Dates: start: 20130601, end: 20130610
  11. STILNOX [Concomitant]
     Indication: INSOMNIA
     Route: 048
     Dates: start: 2013
  12. PARACETAMOL [Concomitant]
     Route: 065
  13. MOPRAL [Concomitant]
     Route: 048
     Dates: start: 2013

REACTIONS (2)
  - Acute coronary syndrome [Recovered/Resolved]
  - Infusion related reaction [Recovered/Resolved]
